FAERS Safety Report 4938530-6 (Version None)
Quarter: 2006Q1

REPORT INFORMATION
  Report Type: 
  Country: None (occurrence: None)
  Receive Date: 20060302
  Receipt Date: 20060221
  Transmission Date: 20060701
  Serious: Yes (Life-Threatening)
  Sender: FDA-Public Use
  Company Number: HQWYE934923FEB06

PATIENT
  Age: 58 Year
  Sex: Male

DRUGS (6)
  1. TAZOCIN (PIPERACILLIN/TAZOBACTAM, INJECTION) [Suspect]
     Indication: PNEUMONIA ASPIRATION
     Dosage: 2.5 G 2X PER 1 DAY INTRAVENOUS DRIP
     Route: 041
     Dates: start: 20060107, end: 20060111
  2. FAMOTIDINE [Suspect]
     Dosage: 20 MG PER DAY ORAL
     Route: 048
     Dates: start: 20060107, end: 20060111
  3. SOLU-CORTEF [Concomitant]
  4. CATABON (DOPAMINE HYDROCHLORIDE) [Concomitant]
  5. NORADRENALINE (NOREPINEPHRINE) [Concomitant]
  6. ZOLPIDEM TARTRATE [Concomitant]

REACTIONS (2)
  - ACUTE RESPIRATORY DISTRESS SYNDROME [None]
  - PNEUMONITIS [None]
